FAERS Safety Report 6310860-5 (Version None)
Quarter: 2009Q3

REPORT INFORMATION
  Report Type: 
  Country: None (occurrence: None)
  Receive Date: 20090803
  Receipt Date: 20090721
  Transmission Date: 20100115
  Serious: Yes (Other)
  Sender: FDA-Public Use
  Company Number: THYM-1001115

PATIENT
  Age: 2 Year
  Sex: Female
  Weight: 13 kg

DRUGS (7)
  1. THYMOGLOBULIN (ANTI-THYMOCYTE GLOBULIN (RABBIT) POWDER FOR SOLUTION [Suspect]
     Indication: LIVER TRANSPLANT
     Dosage: 2 MG/KG, QD, INTRAVENOUS
     Route: 042
     Dates: start: 20090703, end: 20090705
  2. PROGRAF [Concomitant]
  3. SEPTRA [Concomitant]
  4. PROCHLORPERAZINE MALEATE [Concomitant]
  5. VALCYTE [Concomitant]
  6. PENICILLIN (PHENOXYMETHYLPENICILLIN BENZATHINE) [Concomitant]
  7. AMOXICILLIN TRIHYDRATE [Concomitant]

REACTIONS (6)
  - ALANINE AMINOTRANSFERASE INCREASED [None]
  - ASPARTATE AMINOTRANSFERASE INCREASED [None]
  - BLOOD ALKALINE PHOSPHATASE INCREASED [None]
  - DRUG INEFFECTIVE [None]
  - GAMMA-GLUTAMYLTRANSFERASE INCREASED [None]
  - LIVER FUNCTION TEST ABNORMAL [None]
